FAERS Safety Report 4736863-X (Version None)
Quarter: 2005Q3

REPORT INFORMATION
  Report Type: 
  Country: None (occurrence: None)
  Receive Date: 20050808
  Receipt Date: 20050802
  Transmission Date: 20060218
  Serious: Yes (Death, Hospitalization)
  Sender: FDA-Public Use
  Company Number: US-GLAXOSMITHKLINE-A0568686A

PATIENT
  Age: 40 Year
  Sex: Male
  Weight: 72.7 kg

DRUGS (3)
  1. FOSAMPRENAVIR [Suspect]
     Indication: HIV INFECTION
     Dosage: 2TAB PER DAY
     Route: 048
     Dates: start: 20050721
  2. EPZICOM [Suspect]
     Indication: HIV INFECTION
     Dosage: 1TAB PER DAY
     Route: 048
     Dates: start: 20050721
  3. NORVIR [Suspect]
     Indication: HIV INFECTION
     Dosage: 200MG PER DAY
     Route: 048
     Dates: start: 20050721

REACTIONS (30)
  - CARDIAC ARREST [None]
  - CHILLS [None]
  - CONVULSION [None]
  - DIARRHOEA [None]
  - DISORIENTATION [None]
  - ENCEPHALOPATHY [None]
  - FEELING ABNORMAL [None]
  - HEAT STROKE [None]
  - HEPATIC ENZYME INCREASED [None]
  - HOSTILITY [None]
  - HYPERTENSION [None]
  - HYPERTHERMIA [None]
  - HYPERTHERMIA MALIGNANT [None]
  - HYPOKALAEMIA [None]
  - HYPOTHERMIA [None]
  - HYPOXIA [None]
  - INFECTION [None]
  - INFLUENZA LIKE ILLNESS [None]
  - MALAISE [None]
  - METABOLIC ACIDOSIS [None]
  - OLIGURIA [None]
  - PUPIL FIXED [None]
  - PYREXIA [None]
  - RENAL FAILURE [None]
  - RESPIRATORY FAILURE [None]
  - RHABDOMYOLYSIS [None]
  - ROAD TRAFFIC ACCIDENT [None]
  - THERAPY NON-RESPONDER [None]
  - TROPONIN INCREASED [None]
  - URINE ABNORMALITY [None]
